FAERS Safety Report 10563151 (Version 3)
Quarter: 2015Q1

REPORT INFORMATION
  Report Type: Report from Study
  Country: US (occurrence: US)
  Receive Date: 20141104
  Receipt Date: 20150113
  Transmission Date: 20150720
  Serious: Yes (Hospitalization)
  Sender: FDA-Public Use
  Company Number: US-009507513-1410USA015547

PATIENT
  Age: 54 Year
  Sex: Female
  Weight: 49.5 kg

DRUGS (6)
  1. CYTARABINE. [Suspect]
     Active Substance: CYTARABINE
     Indication: ACUTE MYELOID LEUKAEMIA
     Dosage: 750 MG/M2, QD; CONTINUOUS IV INFUSION ON DAYS 4-6
     Route: 042
     Dates: end: 20141009
  2. VORINOSTAT [Suspect]
     Active Substance: VORINOSTAT
     Dosage: 500 MG, TID; ON DAYS 1-3
     Route: 048
     Dates: start: 20140829, end: 20140831
  3. CYTARABINE. [Suspect]
     Active Substance: CYTARABINE
     Dosage: 1500MG/M2/DAY; CONTINUOUS IV INFUSION ON DAYS 4-7
     Route: 042
     Dates: start: 20140901, end: 20140904
  4. IDARUBICIN [Suspect]
     Active Substance: IDARUBICIN
     Indication: ACUTE MYELOID LEUKAEMIA
     Dosage: 08 MG/M2, QD; OVER 15 MIN ON DAYS 4-5
     Route: 042
     Dates: start: 20141010, end: 20141011
  5. VORINOSTAT [Suspect]
     Active Substance: VORINOSTAT
     Indication: ACUTE MYELOID LEUKAEMIA
     Dosage: 500 MG, TID; ON DAYS 1-3
     Route: 048
     Dates: start: 20141007, end: 20141012
  6. IDARUBICIN [Suspect]
     Active Substance: IDARUBICIN
     Dosage: 12 MG/M2, QD; OVER 15 MIN ON DAYS 4-6
     Route: 042
     Dates: start: 20140901, end: 20140903

REACTIONS (2)
  - Influenza like illness [Recovered/Resolved]
  - Colitis [Recovered/Resolved]

NARRATIVE: CASE EVENT DATE: 20141018
